FAERS Safety Report 7742445-8 (Version None)
Quarter: 2011Q3

REPORT INFORMATION
  Report Type: 
  Country: None (occurrence: None)
  Receive Date: 20110830
  Receipt Date: 20110819
  Transmission Date: 20111222
  Serious: Yes (Hospitalization, Disabling, Other)
  Sender: FDA-Public Use
  Company Number: 2010SP065508

PATIENT
  Age: 20 Year
  Sex: Female

DRUGS (2)
  1. NUVARING [Suspect]
     Indication: CONTRACEPTION
     Dosage: VAG
     Route: 067
     Dates: start: 20070101, end: 20090101
  2. ADVIL LIQUI-GELS [Concomitant]

REACTIONS (17)
  - ARRESTED LABOUR [None]
  - PLACENTAL INFARCTION [None]
  - PAIN [None]
  - PREGNANCY WITH CONTRACEPTIVE DEVICE [None]
  - LIGAMENT SPRAIN [None]
  - CERVICAL DYSPLASIA [None]
  - BACK PAIN [None]
  - MYALGIA [None]
  - IMPAIRED WORK ABILITY [None]
  - OVARIAN CYST [None]
  - CAESAREAN SECTION [None]
  - LOSS OF EMPLOYMENT [None]
  - FALL [None]
  - HUMAN PAPILLOMA VIRUS TEST POSITIVE [None]
  - DEVICE MALFUNCTION [None]
  - MATERNAL EXPOSURE DURING PREGNANCY [None]
  - PULMONARY EMBOLISM [None]
